FAERS Safety Report 18007734 (Version 2)
Quarter: 2020Q3

REPORT INFORMATION
  Report Type: Spontaneous
  Country: US (occurrence: US)
  Receive Date: 20200710
  Receipt Date: 20200714
  Transmission Date: 20201103
  Serious: Yes (Death, Other)
  Sender: FDA-Public Use
  Company Number: US-PFIZER INC-2020264644

PATIENT
  Age: 41 Year
  Sex: Male

DRUGS (2)
  1. HEPARIN SODIUM. [Suspect]
     Active Substance: HEPARIN SODIUM
     Indication: DISSEMINATED INTRAVASCULAR COAGULATION
     Dosage: 10000 IU
     Route: 042
  2. DEXTROSE. [Concomitant]
     Active Substance: DEXTROSE
     Dosage: UNK

REACTIONS (3)
  - Cerebral haemorrhage [Fatal]
  - Treatment failure [Fatal]
  - Haemorrhagic diathesis [Fatal]
